FAERS Safety Report 5411988-4 (Version None)
Quarter: 2007Q3

REPORT INFORMATION
  Report Type: 
  Country: None (occurrence: None)
  Receive Date: 20070810
  Receipt Date: 20070810
  Transmission Date: 20080115
  Serious: Yes (Other)
  Sender: FDA-Public Use
  Company Number: None

PATIENT
  Age: 51 Year
  Sex: Female
  Weight: 143.7903 kg

DRUGS (2)
  1. FUROSEMIDE [Suspect]
     Indication: CARDIAC FAILURE CHRONIC
     Dosage: 60 - 320 MG/DAY
     Dates: start: 20070714, end: 20070720
  2. FUROSEMIDE [Suspect]
     Indication: CONDITION AGGRAVATED
     Dosage: 60 - 320 MG/DAY
     Dates: start: 20070714, end: 20070720

REACTIONS (1)
  - DEAFNESS [None]
